FAERS Safety Report 9602143 (Version 1)
Quarter: 2013Q4

REPORT INFORMATION
  Report Type: Spontaneous
  Country: RO (occurrence: None)
  Receive Date: 20131002
  Receipt Date: 20131002
  Transmission Date: 20140711
  Serious: Yes (Hospitalization)
  Sender: FDA-Public Use
  Company Number: FK201304325

PATIENT
  Age: 63 Year
  Sex: Male

DRUGS (2)
  1. CISPLATIN [Suspect]
     Indication: NASOPHARYNGEAL CANCER
  2. DOCETAXEL(DOCETAXEL) [Concomitant]

REACTIONS (3)
  - Hepatitis cholestatic [None]
  - Normochromic normocytic anaemia [None]
  - Hepatotoxicity [None]
